FAERS Safety Report 6482721-2 (Version None)
Quarter: 2009Q4

REPORT INFORMATION
  Report Type: 
  Country: None (occurrence: None)
  Receive Date: 20091203
  Receipt Date: 20091120
  Transmission Date: 20100525
  Serious: Yes (Hospitalization, Disabling)
  Sender: FDA-Public Use
  Company Number: 2009AL007462

PATIENT
  Age: 63 Year
  Sex: Male

DRUGS (11)
  1. IMPRAMINE HCL [Suspect]
     Indication: DEPRESSION
     Dosage: 75 MG; QD; PO
     Route: 048
     Dates: start: 20091022, end: 20091106
  2. PROGRAF [Concomitant]
  3. RANITIDINE [Concomitant]
  4. ZOPICLONE [Concomitant]
  5. FLOXACILLIN SODIUM [Concomitant]
  6. METOCLOPRAMIDE [Concomitant]
  7. AZATHIOPRINE [Concomitant]
  8. MIRTAZAPINE [Concomitant]
  9. PIPERACILLIN [Concomitant]
  10. TAZOBACTAM [Concomitant]
  11. DEMECLOCYCLINE HCL [Concomitant]

REACTIONS (4)
  - CONFUSIONAL STATE [None]
  - DECREASED APPETITE [None]
  - HYPONATRAEMIA [None]
  - MALNUTRITION [None]
